FAERS Safety Report 20546292 (Version 1)
Quarter: 2022Q1

REPORT INFORMATION
  Report Type: Spontaneous
  Country: US (occurrence: US)
  Receive Date: 20220303
  Receipt Date: 20220303
  Transmission Date: 20220423
  Serious: No
  Sender: FDA-Public Use
  Company Number: US-BIOVITRUM-2022US03097

PATIENT
  Age: 1 Year
  Sex: Female

DRUGS (1)
  1. SYNAGIS [Suspect]
     Active Substance: PALIVIZUMAB
     Indication: Connective tissue neoplasm
     Route: 030
     Dates: start: 20210920

REACTIONS (1)
  - Respiratory tract congestion [Unknown]

NARRATIVE: CASE EVENT DATE: 20220301
